FAERS Safety Report 4604392-X (Version None)
Quarter: 2005Q2

REPORT INFORMATION
  Report Type: 
  Country: None (occurrence: None)
  Receive Date: 20050217
  Receipt Date: 20041228
  Transmission Date: 20051028
  Serious: No
  Sender: FDA-Public Use
  Company Number: S04-USA-08003-01

PATIENT
  Age: 77 Year
  Sex: Female

DRUGS (2)
  1. NAMENDA [Suspect]
     Indication: AMNESIA
     Dosage: 5 MG QD PO
     Route: 048
     Dates: start: 20041222
  2. MULTIPLE MEDICATIONS (NOS) [Concomitant]

REACTIONS (3)
  - GAIT DISTURBANCE [None]
  - PHOTOPHOBIA [None]
  - VISION BLURRED [None]
